FAERS Safety Report 13988760 (Version 2)
Quarter: 2017Q3

REPORT INFORMATION
  Report Type: Spontaneous
  Country: US (occurrence: US)
  Receive Date: 20170916
  Receipt Date: 20170925
  Transmission Date: 20171128
  Serious: Yes (Other)
  Sender: FDA-Public Use
  Company Number: US-AMGEN-USASP2017137588

PATIENT
  Sex: Female

DRUGS (4)
  1. NEUPOGEN [Suspect]
     Active Substance: FILGRASTIM
     Dosage: 480 MUG, AS NECESSARY
     Route: 065
  2. NEUPOGEN [Suspect]
     Active Substance: FILGRASTIM
     Dosage: 100 MUG, AS NECESSARY
     Route: 065
     Dates: start: 20170907
  3. NEUPOGEN [Suspect]
     Active Substance: FILGRASTIM
     Indication: IDIOPATHIC NEUTROPENIA
     Dosage: 300 MUG, AS NECESSARY
     Route: 065
  4. NEUPOGEN [Suspect]
     Active Substance: FILGRASTIM
     Dosage: 300 MUG/ML, QOD
     Route: 065
     Dates: start: 201709

REACTIONS (10)
  - Bone pain [Unknown]
  - Influenza like illness [Unknown]
  - Skin ulcer [Unknown]
  - Stomatitis [Unknown]
  - Neutropenia [Unknown]
  - Pyrexia [Unknown]
  - Myalgia [Unknown]
  - Fatigue [Unknown]
  - Rash [Unknown]
  - Intentional product misuse [Unknown]
